FAERS Safety Report 9863245 (Version 1)
Quarter: 2014Q1

REPORT INFORMATION
  Report Type: Spontaneous
  Country: US (occurrence: US)
  Receive Date: 20140203
  Receipt Date: 20140203
  Transmission Date: 20141002
  Serious: No
  Sender: FDA-Public Use
  Company Number: US-TARO-2013P1000597

PATIENT
  Age: 19 Year
  Sex: Female

DRUGS (2)
  1. NYSTATIN + TRIAMCINOLONE ACETONIDE CREAM USP [Suspect]
     Route: 061
     Dates: start: 20121226, end: 20130109
  2. SYNTHROID [Concomitant]

REACTIONS (1)
  - Urticaria [Recovering/Resolving]
